FAERS Safety Report 21861468 (Version 1)
Quarter: 2023Q1

REPORT INFORMATION
  Report Type: Report from Study
  Country: KR (occurrence: KR)
  Receive Date: 20230113
  Receipt Date: 20230113
  Transmission Date: 20230417
  Serious: Yes (Hospitalization)
  Sender: FDA-Public Use
  Company Number: KR-JNJFOC-20220543971

PATIENT
  Age: 62 Year
  Sex: Female
  Weight: 53.6 kg

DRUGS (30)
  1. AMIVANTAMAB [Suspect]
     Active Substance: AMIVANTAMAB
     Indication: Non-small cell lung cancer metastatic
     Dosage: MOST RECENT DOSE 18-APR-2022
     Route: 042
     Dates: start: 20210601
  2. NEW HYALUNI [Concomitant]
     Indication: Dry eye
     Route: 047
     Dates: start: 20210525
  3. PREDNISOLONE VALERATE ACETATE [Concomitant]
     Active Substance: PREDNISOLONE VALERATE ACETATE
     Indication: Rash
     Dosage: 1 (UNIT NOT PROVIDED)
     Route: 061
     Dates: start: 20220418
  4. ESPERSON [Concomitant]
     Indication: Rash
     Dosage: 1 (UNIT NOT PROVIDED)
     Route: 061
     Dates: start: 20210712, end: 20220518
  5. ESPERSON [Concomitant]
     Indication: Rash
  6. GANAKHAN [Concomitant]
     Indication: Dyspepsia
     Route: 048
     Dates: start: 20220124
  7. ALLEGRA [Concomitant]
     Active Substance: FEXOFENADINE HYDROCHLORIDE
     Indication: Rash
     Route: 048
     Dates: start: 20220124
  8. TANTUM [BENZYDAMINE HYDROCHLORIDE] [Concomitant]
     Indication: Stomatitis
     Dosage: 1 (UNIT NOT PROVIDED)
     Route: 050
     Dates: start: 20220207, end: 20220518
  9. TANTUM [BENZYDAMINE HYDROCHLORIDE] [Concomitant]
     Indication: Stomatitis
     Dosage: 1 (UNIT NOT PROVIDED)
     Route: 050
     Dates: start: 20220519
  10. BEAROBAN [Concomitant]
     Indication: Paronychia
     Dosage: 1 (UNIT NOT PROVIDED)
     Route: 061
     Dates: start: 20210702
  11. TYLENOL [Concomitant]
     Active Substance: ACETAMINOPHEN
     Indication: Musculoskeletal chest pain
     Route: 048
     Dates: start: 20220502
  12. LACTICARE HC [HYDROCORTISONE] [Concomitant]
     Indication: Urticaria
     Dosage: 1 (UNIT NOT PROVIDED)
     Route: 061
     Dates: start: 20210604
  13. LACTICARE HC [HYDROCORTISONE] [Concomitant]
     Indication: Rash
  14. LACTICARE HC [HYDROCORTISONE] [Concomitant]
     Indication: Rash
  15. ESOMEZOL [ESOMEPRAZOLE STRONTIUM] [Concomitant]
     Indication: Dyspepsia
     Route: 048
     Dates: start: 20211115
  16. EASYEF [Concomitant]
     Indication: Rash
     Dosage: 1 (UNIT NOT PROVIDED)
     Route: 061
     Dates: start: 20210809
  17. EASYEF [Concomitant]
     Indication: Rash
  18. TOPISOL MILK LOTION [Concomitant]
     Indication: Urticaria
     Dosage: 1 (UNIT NOT PROVIDED)
     Route: 061
     Dates: start: 20210604
  19. TOPISOL MILK LOTION [Concomitant]
     Indication: Erythema
  20. TOPISOL MILK LOTION [Concomitant]
     Indication: Rash
  21. TOPISOL MILK LOTION [Concomitant]
     Indication: Rash
  22. DOXYCYCLINE [Concomitant]
     Active Substance: DOXYCYCLINE
     Indication: Rash
     Route: 048
     Dates: start: 20220124, end: 20220509
  23. DOXYCYCLINE [Concomitant]
     Active Substance: DOXYCYCLINE
     Indication: Paronychia
     Route: 048
     Dates: start: 20220510, end: 20220518
  24. DOXYCYCLINE [Concomitant]
     Active Substance: DOXYCYCLINE
     Indication: Rash
  25. XYZAL [Concomitant]
     Active Substance: LEVOCETIRIZINE DIHYDROCHLORIDE
     Indication: Rash
     Route: 048
     Dates: start: 20220124
  26. MOMETASONE FUROATE [Concomitant]
     Active Substance: MOMETASONE FUROATE
     Indication: Rash
     Dosage: 1 (UNIT NOT PROVIDED)
     Route: 061
     Dates: start: 20220124
  27. DULCOLAX STOOL SOFTENER [Concomitant]
     Active Substance: DOCUSATE SODIUM
     Indication: Constipation
     Route: 048
     Dates: start: 20210609
  28. PREDNISOLONE [Concomitant]
     Active Substance: PREDNISOLONE
     Indication: Rash
     Route: 048
     Dates: start: 20220502, end: 20220518
  29. PREDNISOLONE [Concomitant]
     Active Substance: PREDNISOLONE
     Indication: Rash
     Route: 050
     Dates: start: 20220520, end: 20220520
  30. PREDNISOLONE [Concomitant]
     Active Substance: PREDNISOLONE
     Indication: Stomatitis
     Route: 048
     Dates: start: 20220527, end: 20220601

REACTIONS (2)
  - Rash [Recovering/Resolving]
  - Pulmonary embolism [Recovering/Resolving]

NARRATIVE: CASE EVENT DATE: 20220511
